FAERS Safety Report 14976691 (Version 1)
Quarter: 2018Q2

REPORT INFORMATION
  Report Type: Spontaneous
  Country: US (occurrence: US)
  Receive Date: 20180605
  Receipt Date: 20180605
  Transmission Date: 20180711
  Serious: No
  Sender: FDA-Public Use
  Company Number: US-JNJFOC-20180520139

PATIENT
  Age: 2 Year
  Sex: Male

DRUGS (1)
  1. TYLENOL CHILD CHEWABLE [Suspect]
     Active Substance: ACETAMINOPHEN
     Indication: PRODUCT USED FOR UNKNOWN INDICATION
     Route: 048
     Dates: start: 20180511, end: 20180511

REACTIONS (1)
  - Extra dose administered [Unknown]
